FAERS Safety Report 19091878 (Version 1)
Quarter: 2021Q2

REPORT INFORMATION
  Report Type: Spontaneous
  Country: US (occurrence: US)
  Receive Date: 20210402
  Receipt Date: 20210402
  Transmission Date: 20210717
  Serious: Yes (Hospitalization, Other)
  Sender: FDA-Public Use
  Company Number: None

PATIENT
  Age: 29 Year
  Sex: Female
  Weight: 79.65 kg

DRUGS (2)
  1. HUMIRA [Suspect]
     Active Substance: ADALIMUMAB
     Indication: RHEUMATOID ARTHRITIS
     Dosage: ?          QUANTITY:1 INJECTION(S);
     Route: 030
     Dates: start: 20200901, end: 20210203
  2. PRENATAL VITAMINS [Concomitant]
     Active Substance: VITAMINS

REACTIONS (6)
  - Vomiting [None]
  - Vaginal haemorrhage [None]
  - Exposure during pregnancy [None]
  - Pregnancy [None]
  - Presyncope [None]
  - Subchorionic haematoma [None]

NARRATIVE: CASE EVENT DATE: 20210310
